FAERS Safety Report 24791338 (Version 1)
Quarter: 2024Q4

REPORT INFORMATION
  Report Type: Spontaneous
  Country: US (occurrence: US)
  Receive Date: 20241231
  Receipt Date: 20241231
  Transmission Date: 20250115
  Serious: Yes (Other)
  Sender: BRISTOL-MYERS SQUIBB COMPANY
  Company Number: US-CELGENE-USA-2016023663

PATIENT
  Age: 47 Year
  Sex: Male

DRUGS (1)
  1. ISTODAX [Suspect]
     Active Substance: ROMIDEPSIN
     Indication: Peripheral T-cell lymphoma unspecified
     Dosage: DAY 1, 8 15 Q 28 DAYS
     Route: 042

REACTIONS (3)
  - Urosepsis [Unknown]
  - Anaemia [Unknown]
  - Thrombocytopenia [Unknown]
